FAERS Safety Report 5226789-X (Version None)
Quarter: 2007Q1

REPORT INFORMATION
  Report Type: 
  Country: None (occurrence: None)
  Receive Date: 20070130
  Receipt Date: 20070122
  Transmission Date: 20070707
  Serious: Yes (Death)
  Sender: FDA-Public Use
  Company Number: TAP2007Q00092

PATIENT
  Age: 63 Year
  Sex: Male

DRUGS (15)
  1. LUPRON DEPOT-4 [Suspect]
     Indication: PROSTATE CANCER
     Dosage: 30 MG, 1 IN 4 M, INTRAMUSCULAR
     Route: 030
     Dates: start: 20060419, end: 20061218
  2. AMITRIPTYLINE HCL [Concomitant]
  3. ASPIRIN [Concomitant]
  4. DIAMICRON (GLICLAZIDE) [Concomitant]
  5. LEVOTHYROXINE SODIUM [Concomitant]
  6. FERROUS SULFATE TAB [Concomitant]
  7. FLOMAX (MORNIFLUMATE) [Concomitant]
  8. HYDRALAZINE HCL [Concomitant]
  9. INSULIN RAPID (INSULIN) [Concomitant]
  10. INSULIN N (INSULIN) [Concomitant]
  11. LOPERAMIDE HCL [Concomitant]
  12. METOPROLOL TARTRATE [Concomitant]
  13. NORVASC [Concomitant]
  14. TYLENOL W/ CODEINE NO. 3 [Concomitant]
  15. MULTIVITAMIN (MULTIVITAMIN) [Concomitant]

REACTIONS (1)
  - DEATH [None]
